FAERS Safety Report 11120180 (Version 1)
Quarter: 2015Q2

REPORT INFORMATION
  Report Type: Spontaneous
  Country: US (occurrence: US)
  Receive Date: 20150518
  Receipt Date: 20150518
  Transmission Date: 20150821
  Serious: No
  Sender: FDA-Public Use
  Company Number: US-GLAXOSMITHKLINE-US2015065659

PATIENT
  Sex: Male

DRUGS (6)
  1. KAZANO [Concomitant]
     Active Substance: ALOGLIPTIN BENZOATE\METFORMIN HYDROCHLORIDE
  2. METOPROLOL [Concomitant]
     Active Substance: METOPROLOL
  3. ALTACE [Concomitant]
     Active Substance: RAMIPRIL
  4. LANTUS [Concomitant]
     Active Substance: INSULIN GLARGINE
  5. TANZEUM [Suspect]
     Active Substance: ALBIGLUTIDE
     Indication: DIABETES MELLITUS
     Dosage: 1 DF, WE
     Dates: start: 201503, end: 20150510
  6. NOVOLOG [Concomitant]
     Active Substance: INSULIN ASPART

REACTIONS (2)
  - Vomiting [Recovered/Resolved]
  - Hypersensitivity [Recovered/Resolved]
